FAERS Safety Report 23437138 (Version 1)
Quarter: 2024Q1

REPORT INFORMATION
  Report Type: Spontaneous
  Country: US (occurrence: None)
  Receive Date: 20240123
  Receipt Date: 20240123
  Transmission Date: 20240409
  Serious: Yes (Other)
  Sender: FDA-Public Use
  Company Number: None

PATIENT
  Age: 77 Year
  Sex: Female

DRUGS (24)
  1. AMBRISENTAN [Suspect]
     Active Substance: AMBRISENTAN
     Indication: Pulmonary hypertension
     Dosage: 10MG QD ORAL?
     Route: 048
     Dates: start: 20141017
  2. SILDENAFIL [Concomitant]
     Active Substance: SILDENAFIL
  3. FUROSEMIDE [Concomitant]
     Active Substance: FUROSEMIDE
  4. ALLOPURINOL [Concomitant]
     Active Substance: ALLOPURINOL
  5. MONTELUKAST [Concomitant]
     Active Substance: MONTELUKAST SODIUM
  6. PANTOPRAZOLE [Concomitant]
     Active Substance: PANTOPRAZOLE
  7. PREDNISONE [Concomitant]
     Active Substance: PREDNISONE
  8. LORATADINE [Concomitant]
     Active Substance: LORATADINE
  9. ESTRACE [Concomitant]
     Active Substance: ESTRADIOL
  10. ATORVASTATIN [Concomitant]
     Active Substance: ATORVASTATIN
  11. LEVOTHYROXINE [Concomitant]
     Active Substance: LEVOTHYROXINE\LEVOTHYROXINE SODIUM
  12. CLEARLAX [Concomitant]
     Active Substance: POLYETHYLENE GLYCOL 3350
  13. COLACE [Concomitant]
     Active Substance: DOCUSATE SODIUM
  14. ALBUTEROL [Concomitant]
     Active Substance: ALBUTEROL
  15. VITAMIN C [Concomitant]
     Active Substance: ASCORBIC ACID
  16. ASTELIN [Concomitant]
     Active Substance: AZELASTINE HYDROCHLORIDE
  17. Calcium 600-DE [Concomitant]
  18. Alvesco HfFA [Concomitant]
  19. FERROUS GLUCONATE [Concomitant]
     Active Substance: FERROUS GLUCONATE
  20. VITAMINS [Concomitant]
     Active Substance: VITAMINS
  21. oMEGA-3 ratty acids [Concomitant]
  22. VITAMIN B COMPLEX [Concomitant]
     Active Substance: CYANOCOBALAMIN\DEXPANTHENOL\NIACINAMIDE\PYRIDOXINE HYDROCHLORIDE\RIBOFLAVIN 5^-PHOSPHATE SODIUM\THIA
  23. ASPIRIN [Concomitant]
     Active Substance: ASPIRIN
  24. DILTIAZEM [Concomitant]
     Active Substance: DILTIAZEM

REACTIONS (1)
  - Chest pain [None]

NARRATIVE: CASE EVENT DATE: 20231229
